FAERS Safety Report 5375758-8 (Version None)
Quarter: 2007Q2

REPORT INFORMATION
  Report Type: 
  Country: None (occurrence: None)
  Receive Date: 20070628
  Receipt Date: 20070615
  Transmission Date: 20071010
  Serious: Yes (Other)
  Sender: FDA-Public Use
  Company Number: 234649K07USA

PATIENT
  Age: 43 Year
  Sex: Male

DRUGS (6)
  1. REBIF (INTERRERON BETA) [Suspect]
     Indication: MULTIPLE SCLEROSIS
     Dosage: 44 MCG, 3 IN 1 WEEKS, SUBCUTANEOUS
     Route: 058
     Dates: start: 20061003
  2. MORPHINE [Suspect]
     Dosage: TOPICAL
     Route: 061
     Dates: start: 20070101
  3. VICODIN [Suspect]
     Dates: start: 20070101
  4. OXYCODONE HCL [Suspect]
     Dates: start: 20070101
  5. NEURONTIN [Suspect]
     Dates: start: 20070101
  6. ALEVE [Suspect]
     Dates: start: 20070101

REACTIONS (5)
  - CONFUSIONAL STATE [None]
  - EYE ROLLING [None]
  - INAPPROPRIATE SCHEDULE OF DRUG ADMINISTRATION [None]
  - MOVEMENT DISORDER [None]
  - OVERDOSE [None]
